FAERS Safety Report 17034384 (Version 3)
Quarter: 2021Q2

REPORT INFORMATION
  Report Type: Report from Study
  Country: GB (occurrence: GB)
  Receive Date: 20191115
  Receipt Date: 20210430
  Transmission Date: 20210716
  Serious: Yes (Hospitalization)
  Sender: FDA-Public Use
  Company Number: GB-EMD SERONO-9110187

PATIENT
  Age: 52 Year
  Sex: Male

DRUGS (1)
  1. REBIF [Suspect]
     Active Substance: INTERFERON BETA-1A
     Indication: MULTIPLE SCLEROSIS
     Dosage: CARTRIDGES
     Route: 058
     Dates: start: 20190705

REACTIONS (8)
  - Incorrect dose administered [Unknown]
  - Hepatic steatosis [Unknown]
  - Haemoptysis [Unknown]
  - Influenza like illness [Unknown]
  - Blood pressure systolic increased [Unknown]
  - Wrong technique in product usage process [Unknown]
  - Chest pain [Unknown]
  - Hepatic lesion [Unknown]

NARRATIVE: CASE EVENT DATE: 2019
